FAERS Safety Report 5730455-1 (Version None)
Quarter: 2008Q2

REPORT INFORMATION
  Report Type: 
  Country: None (occurrence: None)
  Receive Date: 20080507
  Receipt Date: 20080429
  Transmission Date: 20081010
  Serious: Yes (Hospitalization)
  Sender: FDA-Public Use
  Company Number: GB-ROCHE-561633

PATIENT
  Sex: Female
  Weight: 108 kg

DRUGS (8)
  1. ORLISTAT [Suspect]
     Indication: OBESITY
     Route: 048
     Dates: start: 20071019
  2. HUMALOG [Concomitant]
     Dosage: 6 IU MANE, 8IU MIDDAY AND 10IU EVENING
     Route: 058
  3. SIMVASTATIN [Concomitant]
     Route: 048
  4. RAMIPRIL [Concomitant]
     Route: 048
  5. LANSOPRAZOLE [Concomitant]
     Indication: GASTRIC DISORDER
     Route: 048
  6. BISOPROLOL FUMARATE [Concomitant]
     Dosage: ENTERED AS BIOPROLOL
     Route: 048
  7. ASPIRIN [Concomitant]
     Indication: THROMBOSIS PROPHYLAXIS
     Dosage: ENTERED AS ASPRIN
     Route: 048
  8. INSULIN GLARGINE [Concomitant]
     Dosage: ENTERED AS GLARGINE
     Route: 048

REACTIONS (1)
  - LOCALISED INFECTION [None]
